FAERS Safety Report 7163816-7 (Version None)
Quarter: 2010Q4

REPORT INFORMATION
  Report Type: 
  Country: None (occurrence: None)
  Receive Date: 20101215
  Receipt Date: 20100617
  Transmission Date: 20110411
  Serious: Yes (Other)
  Sender: FDA-Public Use
  Company Number: US-PFIZER INC-2010076677

PATIENT
  Sex: Male
  Weight: 90.703 kg

DRUGS (1)
  1. LYRICA [Suspect]
     Indication: EXOSTOSIS
     Dosage: 50 MG, DAILY
     Route: 048
     Dates: start: 20100501, end: 20100601

REACTIONS (1)
  - CATARACT [None]
